FAERS Safety Report 23535356 (Version 1)
Quarter: 2024Q1

REPORT INFORMATION
  Report Type: Spontaneous
  Country: US (occurrence: US)
  Receive Date: 20240218
  Receipt Date: 20240218
  Transmission Date: 20240410
  Serious: Yes (Death, Hospitalization, Other)
  Sender: FDA-Public Use
  Company Number: US-AUROBINDO-AUR-APL-2024-007052

PATIENT
  Age: 37 Year
  Sex: Female

DRUGS (1)
  1. COLCHICINE [Suspect]
     Active Substance: COLCHICINE
     Indication: Product used for unknown indication
     Dosage: UNK(24MG; 0.3 MG/KG)
     Route: 065

REACTIONS (7)
  - Poisoning [Fatal]
  - Overdose [Fatal]
  - Acute respiratory distress syndrome [Fatal]
  - Acute kidney injury [Fatal]
  - Lactic acidosis [Fatal]
  - Multiple organ dysfunction syndrome [Fatal]
  - Shock [Fatal]
